FAERS Safety Report 5803756-6 (Version None)
Quarter: 2008Q3

REPORT INFORMATION
  Report Type: 
  Country: None (occurrence: None)
  Receive Date: 20080708
  Receipt Date: 20080107
  Transmission Date: 20090109
  Serious: No
  Sender: FDA-Public Use
  Company Number: US-AMGEN-KDL259516

PATIENT
  Sex: Female

DRUGS (2)
  1. KINERET [Suspect]
     Indication: RHEUMATOID ARTHRITIS
     Route: 058
     Dates: start: 20071201
  2. SULFASALAZINE [Concomitant]
     Dates: start: 20010101

REACTIONS (3)
  - ACNE CYSTIC [None]
  - GASTROENTERITIS VIRAL [None]
  - SINUSITIS [None]
